FAERS Safety Report 19759753 (Version 3)
Quarter: 2021Q3

REPORT INFORMATION
  Report Type: Spontaneous
  Country: US (occurrence: US)
  Receive Date: 20210830
  Receipt Date: 20210916
  Transmission Date: 20211014
  Serious: No
  Sender: FDA-Public Use
  Company Number: NVSC2021US194562

PATIENT
  Sex: Female

DRUGS (1)
  1. COSENTYX [Suspect]
     Active Substance: SECUKINUMAB
     Indication: PSORIATIC ARTHROPATHY
     Dosage: 150 MG, QW
     Route: 058

REACTIONS (7)
  - Fatigue [Unknown]
  - Pain in extremity [Unknown]
  - Hypertension [Unknown]
  - Pyrexia [Unknown]
  - Pain [Unknown]
  - Influenza like illness [Unknown]
  - Pharyngeal erythema [Unknown]
